FAERS Safety Report 9926056 (Version 2)
Quarter: 2014Q1

REPORT INFORMATION
  Report Type: Spontaneous
  Country: NL (occurrence: NL)
  Receive Date: 20140226
  Receipt Date: 20140226
  Transmission Date: 20141002
  Serious: Yes (Hospitalization, Congenital Anomaly, Other)
  Sender: FDA-Public Use
  Company Number: NL-ABBVIE-10P-114-0668121-00

PATIENT
  Sex: Female

DRUGS (1)
  1. HUMIRA [Suspect]
     Indication: MATERNAL EXPOSURE TIMING UNSPECIFIED
     Route: 064

REACTIONS (4)
  - Foetal distress syndrome [Recovered/Resolved]
  - Bradycardia [Recovered/Resolved]
  - Oesophageal atresia [Recovered/Resolved]
  - Foetal exposure during pregnancy [Unknown]
